FAERS Safety Report 5487634-0 (Version None)
Quarter: 2007Q4

REPORT INFORMATION
  Report Type: 
  Country: None (occurrence: None)
  Receive Date: 20071012
  Receipt Date: 20071012
  Transmission Date: 20080405
  Serious: Yes (Other)
  Sender: FDA-Public Use
  Company Number: None

PATIENT
  Age: 46 Year
  Sex: Male

DRUGS (1)
  1. GEODON [Suspect]
     Indication: SCHIZOPHRENIA
     Dosage: 120MG 1630 QD PO
     Route: 048
     Dates: start: 20070824, end: 20070922

REACTIONS (1)
  - EXTRAPYRAMIDAL DISORDER [None]
